FAERS Safety Report 5454204-X (Version None)
Quarter: 2007Q3

REPORT INFORMATION
  Report Type: 
  Country: None (occurrence: None)
  Receive Date: 20070917
  Receipt Date: 20070228
  Transmission Date: 20080115
  Serious: Yes (Hospitalization)
  Sender: FDA-Public Use
  Company Number: US-ASTRAZENECA-2006UW11028

PATIENT
  Sex: Male
  Weight: 75 kg

DRUGS (4)
  1. SEROQUEL [Suspect]
     Indication: SCHIZOPHRENIA
     Dosage: 40 MG TO 100 MG
     Route: 048
     Dates: start: 20020101, end: 20060101
  2. ZYPREXA [Suspect]
  3. RISPERDAL [Suspect]
  4. STELAZINE [Suspect]

REACTIONS (3)
  - CARPAL TUNNEL SYNDROME [None]
  - DIABETES MELLITUS [None]
  - TENDONITIS [None]
